FAERS Safety Report 18156022 (Version 2)
Quarter: 2020Q3

REPORT INFORMATION
  Report Type: Spontaneous
  Country: US (occurrence: US)
  Receive Date: 20200817
  Receipt Date: 20200821
  Transmission Date: 20201103
  Serious: Yes (Hospitalization, Other)
  Sender: FDA-Public Use
  Company Number: US-PFIZER INC-2020314521

PATIENT
  Age: 11 Year
  Sex: Female
  Weight: 30 kg

DRUGS (15)
  1. DIPHENHYDRAMINE HCL [Suspect]
     Active Substance: DIPHENHYDRAMINE HYDROCHLORIDE
     Dosage: UNK
  2. CLONIDINE. [Interacting]
     Active Substance: CLONIDINE
     Indication: ANXIETY
  3. ONFI [Interacting]
     Active Substance: CLOBAZAM
     Dosage: 5 MG, 2X/DAY (5 MG TWICE A DAY (0.3 MG/KG/DAY))
  4. CLONIDINE. [Interacting]
     Active Substance: CLONIDINE
     Indication: GENERALISED TONIC-CLONIC SEIZURE
     Dosage: 0.2 MG, 1X/DAY (BED TIME)
     Route: 048
  5. BACLOFEN. [Concomitant]
     Active Substance: BACLOFEN
     Indication: QUADRIPLEGIA
     Dosage: 1051 UG, DAILY  (BY PUMP)
  6. LORAZEPAM. [Concomitant]
     Active Substance: LORAZEPAM
     Indication: ANXIETY
     Dosage: 1 MG, 1X/DAY (AT BEDTIME) (0.03 MG/KG/DOSE)
     Route: 048
  7. LORATADINE. [Interacting]
     Active Substance: LORATADINE
     Indication: GENERALISED TONIC-CLONIC SEIZURE
     Dosage: 10 MG, DAILY
     Route: 048
  8. MELATONIN [Interacting]
     Active Substance: MELATONIN
     Indication: GENERALISED TONIC-CLONIC SEIZURE
     Dosage: 3 MG, 1X/DAY (BED TIME)
     Route: 048
  9. LORAZEPAM. [Concomitant]
     Active Substance: LORAZEPAM
     Indication: GENERALISED TONIC-CLONIC SEIZURE
     Dosage: 2 MG (EVERY 4?6 HOURS AS NEEDED)
     Route: 048
  10. ONFI [Interacting]
     Active Substance: CLOBAZAM
     Indication: GENERALISED TONIC-CLONIC SEIZURE
     Dosage: 5 MG, 2X/DAY (0.3 MG/KG/DAY)
     Route: 048
  11. ONFI [Interacting]
     Active Substance: CLOBAZAM
     Dosage: 7.5 MG, 2X/DAY (0.5 MG/KG/DAY)
     Route: 048
  12. GLYCOPYRROLATE [GLYCOPYRRONIUM BROMIDE] [Concomitant]
     Active Substance: GLYCOPYRROLATE
     Indication: GENERALISED TONIC-CLONIC SEIZURE
     Dosage: 1 MG IN THE MORNING, 1.5 MG AT NOON, AND 1 MG AT BEDTIME, AS NEEDED
     Route: 048
  13. ONFI [Interacting]
     Active Substance: CLOBAZAM
     Dosage: 10 MG, 2X/DAY (0.7 MG/KG/DAY)
     Route: 048
  14. CLONAZEPAM. [Concomitant]
     Active Substance: CLONAZEPAM
     Indication: GENERALISED TONIC-CLONIC SEIZURE
     Dosage: 0.02 MG/KG, DAILY (DIVIDED THREE TIMES A DAY)
     Route: 048
  15. LEVETIRACETAM. [Concomitant]
     Active Substance: LEVETIRACETAM
     Indication: GENERALISED TONIC-CLONIC SEIZURE
     Dosage: 1200 MG, 2X/DAY (80 MG/KG/DAY)
     Route: 048

REACTIONS (3)
  - Drug interaction [Recovered/Resolved]
  - Hypersomnia [Recovered/Resolved]
  - Sedation complication [Recovered/Resolved]
